FAERS Safety Report 6308284-X (Version None)
Quarter: 2009Q3

REPORT INFORMATION
  Report Type: 
  Country: None (occurrence: None)
  Receive Date: 20090813
  Receipt Date: 20090810
  Transmission Date: 20100115
  Serious: Yes (Life-Threatening, Hospitalization)
  Sender: FDA-Public Use
  Company Number: ES-MERCK-98119108

PATIENT
  Age: 50 Year
  Sex: Male
  Weight: 63 kg

DRUGS (8)
  1. SINGULAIR [Suspect]
     Indication: BRONCHITIS CHRONIC
     Route: 048
     Dates: start: 19980602, end: 19980629
  2. SINGULAIR [Suspect]
     Indication: CHRONIC OBSTRUCTIVE PULMONARY DISEASE
     Route: 048
     Dates: start: 19980602, end: 19980629
  3. EBROTIDINA [Suspect]
     Indication: DIAPHRAGMATIC HERNIA
     Route: 048
     Dates: start: 19980420, end: 19980629
  4. TEOFILINE [Concomitant]
     Indication: CHRONIC OBSTRUCTIVE PULMONARY DISEASE
     Route: 048
     Dates: start: 19940101
  5. BUDESONIDE [Concomitant]
     Indication: CHRONIC OBSTRUCTIVE PULMONARY DISEASE
     Dates: start: 19940101
  6. IPRATROPIUM BROMIDE [Concomitant]
     Indication: CHRONIC OBSTRUCTIVE PULMONARY DISEASE
     Dates: start: 19940101
  7. SALMETEROL [Concomitant]
     Indication: CHRONIC OBSTRUCTIVE PULMONARY DISEASE
     Dates: start: 19950101
  8. ALBUTEROL [Concomitant]
     Route: 065
     Dates: start: 19950101

REACTIONS (1)
  - HEPATITIS [None]
